FAERS Safety Report 7072723-X (Version None)
Quarter: 2010Q4

REPORT INFORMATION
  Report Type: 
  Country: None (occurrence: None)
  Receive Date: 20101029
  Receipt Date: 20100303
  Transmission Date: 20110411
  Serious: No
  Sender: FDA-Public Use
  Company Number: A0848042A

PATIENT
  Age: 75 Year
  Sex: Male

DRUGS (6)
  1. ADVAIR DISKUS 100/50 [Suspect]
     Dosage: 1PUFF TWICE PER DAY
     Route: 055
     Dates: start: 20100201
  2. COZAAR [Concomitant]
  3. TAZTIA [Concomitant]
  4. TRICOR [Concomitant]
  5. LASIX [Concomitant]
  6. CRESTOR [Concomitant]

REACTIONS (4)
  - COUGH [None]
  - DRUG INEFFECTIVE [None]
  - SPUTUM INCREASED [None]
  - TREATMENT NONCOMPLIANCE [None]
